APPROVED DRUG PRODUCT: CYPROHEPTADINE HYDROCHLORIDE
Active Ingredient: CYPROHEPTADINE HYDROCHLORIDE
Strength: 4MG
Dosage Form/Route: TABLET;ORAL
Application: A088798 | Product #001
Applicant: AMERICAN THERAPEUTICS INC
Approved: Feb 15, 1985 | RLD: No | RS: No | Type: DISCN